FAERS Safety Report 11949974 (Version 1)
Quarter: 2016Q1

REPORT INFORMATION
  Report Type: Report from Study
  Country: US (occurrence: US)
  Receive Date: 20160126
  Receipt Date: 20160126
  Transmission Date: 20160526
  Serious: No
  Sender: FDA-Public Use
  Company Number: US-ABBVIE-15K-163-1359696-00

PATIENT
  Age: 71 Year
  Sex: Female

DRUGS (3)
  1. HUMIRA [Suspect]
     Active Substance: ADALIMUMAB
     Indication: RHEUMATOID ARTHRITIS
     Route: 065
     Dates: start: 20150123
  2. ONGLYZA [Concomitant]
     Active Substance: SAXAGLIPTIN HYDROCHLORIDE
     Indication: DIABETES MELLITUS
     Dosage: EVERY MORNING
  3. METHOTREXATE [Concomitant]
     Active Substance: METHOTREXATE
     Indication: PRODUCT USED FOR UNKNOWN INDICATION

REACTIONS (28)
  - Limb discomfort [Not Recovered/Not Resolved]
  - Hyperglycaemia [Not Recovered/Not Resolved]
  - Fatigue [Recovered/Resolved]
  - Fatigue [Recovered/Resolved]
  - Dry mouth [Recovered/Resolved]
  - Thirst [Recovered/Resolved]
  - Headache [Recovered/Resolved]
  - Limb discomfort [Not Recovered/Not Resolved]
  - Myalgia [Recovered/Resolved]
  - Arthralgia [Recovered/Resolved]
  - Feeling abnormal [Unknown]
  - Dizziness [Unknown]
  - Pain [Unknown]
  - Influenza like illness [Recovered/Resolved]
  - Limb discomfort [Recovered/Resolved]
  - Nausea [Unknown]
  - Abdominal pain upper [Recovered/Resolved]
  - Therapeutic response unexpected [Unknown]
  - Headache [Unknown]
  - Mobility decreased [Not Recovered/Not Resolved]
  - Headache [Unknown]
  - Rhinorrhoea [Recovered/Resolved]
  - Injection site bruising [Recovering/Resolving]
  - Quality of life decreased [Not Recovered/Not Resolved]
  - Abdominal discomfort [Unknown]
  - Mobility decreased [Unknown]
  - Pollakiuria [Recovered/Resolved]
  - Confusional state [Not Recovered/Not Resolved]

NARRATIVE: CASE EVENT DATE: 2015
